FAERS Safety Report 5241264-4 (Version None)
Quarter: 2007Q1

REPORT INFORMATION
  Report Type: 
  Country: None (occurrence: None)
  Receive Date: 20070212
  Receipt Date: 20070212
  Transmission Date: 20070707
  Serious: Yes (Other)
  Sender: FDA-Public Use
  Company Number: None

PATIENT
  Sex: Male
  Weight: 30.8446 kg

DRUGS (1)
  1. LAMICTAL [Suspect]
     Indication: MYOCLONIC EPILEPSY
     Dosage: 100MG BID PO
     Route: 048
     Dates: start: 20061003, end: 20070110

REACTIONS (2)
  - NAUSEA [None]
  - VOMITING [None]
